FAERS Safety Report 22658371 (Version 1)
Quarter: 2023Q2

REPORT INFORMATION
  Report Type: Report from Study
  Country: US (occurrence: US)
  Receive Date: 20230630
  Receipt Date: 20230630
  Transmission Date: 20230722
  Serious: Yes (Hospitalization)
  Sender: FDA-Public Use
  Company Number: US-ULTRAGENYX PHARMACEUTICAL INC.-US-UGX-23-00640

PATIENT
  Age: 12 Year
  Sex: Male

DRUGS (1)
  1. DOJOLVI [Suspect]
     Active Substance: TRIHEPTANOIN
     Indication: Fatty acid oxidation disorder
     Dosage: 13 MILLILITER, QID
     Route: 048

REACTIONS (3)
  - Vomiting [Recovered/Resolved]
  - Fatigue [Recovered/Resolved]
  - Myalgia [Recovered/Resolved]

NARRATIVE: CASE EVENT DATE: 20230501
